FAERS Safety Report 4674825-1 (Version None)
Quarter: 2005Q2

REPORT INFORMATION
  Report Type: 
  Country: None (occurrence: None)
  Receive Date: 20050523
  Receipt Date: 20050512
  Transmission Date: 20051028
  Serious: Yes (Hospitalization)
  Sender: FDA-Public Use
  Company Number: RHO/05/03/SWE

PATIENT
  Age: 32 Year
  Sex: Female

DRUGS (7)
  1. RHOPHYLAC (ANTI-D IMMUNOGLOBULIN) [Suspect]
     Indication: PROPHYLAXIS
     Dosage: 1500 IU, ONCE, I.M.
     Route: 030
     Dates: start: 20050201, end: 20050201
  2. RHOPHYLAC (ANTI-D IMMUNOGLOBULIN) [Suspect]
     Indication: RHESUS INCOMPATIBILITY
     Dosage: 1500 IU, ONCE, I.M.
     Route: 030
     Dates: start: 20050201, end: 20050201
  3. ACETAMINOPHEN [Concomitant]
  4. SYNTOCINON [Concomitant]
  5. SUFENTA (SULFENTANIL CITRATE) [Concomitant]
  6. GLUCOS BAXTER (GLUCOSE) [Concomitant]
  7. RINGER ACETATE BAXTER 9EUFUSOL) [Concomitant]

REACTIONS (1)
  - RASH PRURITIC [None]
